FAERS Safety Report 20745289 (Version 4)
Quarter: 2022Q2

REPORT INFORMATION
  Report Type: Report from Study
  Country: US (occurrence: US)
  Receive Date: 20220425
  Receipt Date: 20220531
  Transmission Date: 20220721
  Serious: No
  Sender: FDA-Public Use
  Company Number: US-NOVARTISTESTPH-NVSC2022US094500

PATIENT
  Sex: Female
  Weight: 95.238 kg

DRUGS (1)
  1. TREPROSTINIL [Suspect]
     Active Substance: TREPROSTINIL
     Indication: Pulmonary arterial hypertension
     Dosage: 87 NG/KG/MIN, CONT (STRENGTH: 5 MG/ML, 1 MG/ML)
     Route: 042
     Dates: start: 20190813

REACTIONS (1)
  - Gait disturbance [Unknown]
